FAERS Safety Report 19866152 (Version 2)
Quarter: 2021Q4

REPORT INFORMATION
  Report Type: Spontaneous
  Country: JP (occurrence: JP)
  Receive Date: 20210922
  Receipt Date: 20211007
  Transmission Date: 20220303
  Serious: No
  Sender: FDA-Public Use
  Company Number: JP-ALXN-A202110157AA

PATIENT
  Sex: Male

DRUGS (20)
  1. SOLIRIS [Suspect]
     Active Substance: ECULIZUMAB
     Indication: Atypical haemolytic uraemic syndrome
     Dosage: 900 MG, UNK
     Route: 042
     Dates: start: 20170111
  2. SOLIRIS [Suspect]
     Active Substance: ECULIZUMAB
     Dosage: 1200 MG, Q2W
     Route: 042
     Dates: end: 20201029
  3. ULTOMIRIS [Concomitant]
     Active Substance: RAVULIZUMAB-CWVZ
     Indication: Atypical haemolytic uraemic syndrome
     Dosage: 2400 MG, SINGLE
     Route: 042
     Dates: start: 20201113, end: 20201113
  4. ULTOMIRIS [Concomitant]
     Active Substance: RAVULIZUMAB-CWVZ
     Dosage: 3000 MG, Q56
     Route: 042
     Dates: start: 20201127
  5. BISOPROLOL FUMARATE [Suspect]
     Active Substance: BISOPROLOL FUMARATE
     Indication: Ventricular extrasystoles
     Dosage: 2.5 MG, QD
     Route: 048
     Dates: start: 20200417
  6. CLOPIDOGREL BESILATE [Concomitant]
     Active Substance: CLOPIDOGREL BESILATE
     Indication: Angina pectoris
     Dosage: 75 MG, QD
     Route: 048
     Dates: start: 20170601
  7. CRESTOR [Concomitant]
     Active Substance: ROSUVASTATIN CALCIUM
     Indication: Dyslipidaemia
     Dosage: 5 MG, QD
     Route: 048
     Dates: start: 20170601
  8. ZETIA [Concomitant]
     Active Substance: EZETIMIBE
     Indication: Dyslipidaemia
     Dosage: 10 MG, QD
     Route: 048
     Dates: start: 20190207
  9. TACROLIMUS [Concomitant]
     Active Substance: TACROLIMUS
     Indication: Renal transplant
     Dosage: 1.5 MG, QD
     Route: 048
     Dates: start: 20161220
  10. MEDROL [Concomitant]
     Active Substance: METHYLPREDNISOLONE
     Indication: Renal transplant
     Dosage: 2 MG, QD
     Route: 048
     Dates: start: 20161222
  11. VESICARE [Concomitant]
     Active Substance: SOLIFENACIN SUCCINATE
     Indication: Neurogenic bladder
     Dosage: 5 MG, QD
     Route: 048
     Dates: start: 20161225
  12. FEBUXOSTAT [Concomitant]
     Active Substance: FEBUXOSTAT
     Indication: Hyperuricaemia
     Dosage: 10 MG, QD
     Route: 048
     Dates: start: 20170109
  13. SULFAMETHOXAZOLE\TRIMETHOPRIM [Concomitant]
     Active Substance: SULFAMETHOXAZOLE\TRIMETHOPRIM
     Indication: Prophylaxis
     Dosage: 1 DF, QD
     Route: 048
     Dates: start: 20170224
  14. CERTICAN [Concomitant]
     Active Substance: EVEROLIMUS
     Indication: Renal transplant
     Dosage: 2.5 MG, QD
     Route: 048
     Dates: start: 20180112
  15. ONEALFA [Concomitant]
     Active Substance: ALFACALCIDOL
     Indication: Osteoporosis
     Dosage: 0.5 ?G, QD
     Route: 048
  16. MENATETRENONE [Concomitant]
     Active Substance: MENATETRENONE
     Indication: Osteoporosis
     Dosage: 45 MG, TID
     Route: 048
  17. CILNIDIPINE [Concomitant]
     Active Substance: CILNIDIPINE
     Indication: Hypertension
     Dosage: 10 MG, QD
     Route: 048
     Dates: start: 20170127
  18. CANDESARTAN CILEXETIL [Concomitant]
     Active Substance: CANDESARTAN CILEXETIL
     Indication: Hypertension
     Dosage: 4 MG, QD
     Route: 048
     Dates: start: 20161223
  19. CALCIUM ASPARTATE [Concomitant]
     Active Substance: CALCIUM ASPARTATE
     Indication: Adrenal insufficiency
     Dosage: 2400 MG, TID
     Route: 048
     Dates: start: 20181019
  20. ALFACALCIDOL [Concomitant]
     Active Substance: ALFACALCIDOL
     Indication: Osteoporosis
     Dosage: 50 MG, QD
     Route: 048
     Dates: start: 20200111

REACTIONS (2)
  - Ventricular extrasystoles [Not Recovered/Not Resolved]
  - Diarrhoea [Recovered/Resolved]

NARRATIVE: CASE EVENT DATE: 20200206
